FAERS Safety Report 4899116-5 (Version None)
Quarter: 2006Q1

REPORT INFORMATION
  Report Type: 
  Country: None (occurrence: None)
  Receive Date: 20060202
  Receipt Date: 20060123
  Transmission Date: 20060701
  Serious: Yes (Other)
  Sender: FDA-Public Use
  Company Number: 2006AC00167

PATIENT
  Age: 63 Year
  Sex: Male

DRUGS (10)
  1. ATENOLOL [Suspect]
  2. RAMIPRIL [Interacting]
     Dates: start: 20010510
  3. MYOCRISIN [Interacting]
     Indication: RHEUMATOID ARTHRITIS
     Dates: start: 19840101, end: 20020801
  4. ISOSORBIDE MONONITRATE [Concomitant]
  5. ASPIRIN [Concomitant]
  6. ATORVASTATIN CALCIUM [Concomitant]
  7. NICORANDIL [Concomitant]
  8. AMLODIPINE [Concomitant]
  9. CLOPIDOGREL [Concomitant]
  10. PREDNISOLONE [Concomitant]

REACTIONS (6)
  - ANGINA PECTORIS [None]
  - DRUG INTERACTION [None]
  - HYPOTENSION [None]
  - MALAISE [None]
  - NAUSEA [None]
  - NITRITOID CRISIS [None]
